FAERS Safety Report 4958275-6 (Version None)
Quarter: 2006Q1

REPORT INFORMATION
  Report Type: 
  Country: None (occurrence: None)
  Receive Date: 20060324
  Receipt Date: 20060308
  Transmission Date: 20060701
  Serious: Yes (Other)
  Sender: FDA-Public Use
  Company Number: ACO-0218-2006

PATIENT

DRUGS (1)
  1. TERNELIN [Suspect]
     Dosage: DF PO
     Route: 048

REACTIONS (1)
  - PANCREATITIS [None]
